FAERS Safety Report 5143563-3 (Version None)
Quarter: 2006Q4

REPORT INFORMATION
  Report Type: 
  Country: None (occurrence: None)
  Receive Date: 20061103
  Receipt Date: 20061026
  Transmission Date: 20070319
  Serious: Yes (Hospitalization)
  Sender: FDA-Public Use
  Company Number: US-KINGPHARMUSA00001-K200601349

PATIENT
  Age: 19 Year
  Sex: Female

DRUGS (7)
  1. ALTACE [Suspect]
     Dosage: 10 MG, QD
     Route: 048
  2. COZAAR [Suspect]
     Dosage: 1 U, QD
     Route: 048
  3. DETENSIEL /00802601/ [Suspect]
     Dosage: 10 MG, QD
     Route: 048
  4. RAPAMUNE [Suspect]
     Dosage: 4 MG, QD
     Route: 048
  5. LERCAN [Suspect]
     Dosage: 1 U, QD
     Route: 048
  6. CELLCEPT [Suspect]
     Dosage: 1000 MG, QD
     Route: 048
     Dates: start: 20050716
  7. LUTERAN [Concomitant]
     Dosage: 1 U, UNK
     Route: 048

REACTIONS (4)
  - CYANOSIS [None]
  - DYSPNOEA [None]
  - HYPOXIA [None]
  - PULMONARY HYPERTENSION [None]
